FAERS Safety Report 9540293 (Version 1)
Quarter: 2013Q3

REPORT INFORMATION
  Report Type: Spontaneous
  Country: DE (occurrence: DE)
  Receive Date: 20130920
  Receipt Date: 20130920
  Transmission Date: 20140515
  Serious: Yes (Hospitalization)
  Sender: FDA-Public Use
  Company Number: DE-TEVA-431979GER

PATIENT
  Age: 54 Year
  Sex: Female

DRUGS (3)
  1. OXALIPLATIN [Suspect]
     Indication: COLON CANCER METASTATIC
     Dosage: RECEIVED 4 CYCLES, THEN 5TH CYCLE STARTED 26 MARCH
     Route: 042
     Dates: start: 201202, end: 201203
  2. FOLINIC ACID [Concomitant]
     Indication: COLON CANCER METASTATIC
     Dosage: RECEIVED 4 CYCLES, THEN 5TH CYCLE STARTED 26 MARCH
     Route: 065
     Dates: start: 201202, end: 201203
  3. FLUOROURACIL [Concomitant]
     Indication: COLON CANCER METASTATIC
     Dosage: RECEIVED 4 CYCLES, THEN 5TH CYCLE STARTED 26 MARCH
     Route: 065
     Dates: start: 201202, end: 201203

REACTIONS (4)
  - Multi-organ failure [Recovering/Resolving]
  - Renal failure acute [Recovered/Resolved]
  - Autoimmune haemolytic anaemia [Recovering/Resolving]
  - Disseminated intravascular coagulation [Recovering/Resolving]
